FAERS Safety Report 15905026 (Version 1)
Quarter: 2019Q1

REPORT INFORMATION
  Report Type: Spontaneous
  Country: KR (occurrence: KR)
  Receive Date: 20190204
  Receipt Date: 20190204
  Transmission Date: 20190417
  Serious: Yes (Death, Hospitalization)
  Sender: FDA-Public Use
  Company Number: KR-STRIDES ARCOLAB LIMITED-2019SP000891

PATIENT
  Age: 9 Year
  Sex: Male

DRUGS (5)
  1. PREDNISOLONE. [Suspect]
     Active Substance: PREDNISOLONE
     Dosage: 2.5 MG, UNKNOWN
     Route: 065
  2. PREDNISOLONE. [Suspect]
     Active Substance: PREDNISOLONE
     Dosage: 20 MG, UNKNOWN
     Route: 065
  3. TACROLIMUS. [Suspect]
     Active Substance: TACROLIMUS
     Indication: RENAL TRANSPLANT
     Dosage: UNK
     Route: 065
  4. MYCOPHENOLATE MOFETIL. [Suspect]
     Active Substance: MYCOPHENOLATE MOFETIL
     Indication: RENAL TRANSPLANT
     Dosage: UNK
     Route: 065
  5. PREDNISOLONE. [Suspect]
     Active Substance: PREDNISOLONE
     Indication: RENAL TRANSPLANT
     Dosage: UNK
     Route: 065

REACTIONS (19)
  - Thrombocytopenia [Unknown]
  - Cystitis haemorrhagic [Unknown]
  - Chest discomfort [Unknown]
  - Anaemia [Unknown]
  - Adenovirus infection [Fatal]
  - Asthenia [Unknown]
  - JC virus infection [Unknown]
  - Kidney infection [Unknown]
  - Tubulointerstitial nephritis [Unknown]
  - Cytomegalovirus infection [Unknown]
  - Pneumocystis jirovecii pneumonia [Unknown]
  - Haematuria [Unknown]
  - Meningitis viral [Unknown]
  - Leukopenia [Unknown]
  - Cough [Unknown]
  - Pyrexia [Unknown]
  - Bone marrow failure [Unknown]
  - Dysuria [Unknown]
  - Generalised tonic-clonic seizure [Unknown]
